FAERS Safety Report 24621252 (Version 1)
Quarter: 2024Q4

REPORT INFORMATION
  Report Type: Report from Study
  Country: KP (occurrence: KP)
  Receive Date: 20241114
  Receipt Date: 20241114
  Transmission Date: 20250115
  Serious: Yes (Other)
  Sender: AUROBINDO
  Company Number: KP-AUROBINDO-AUR-APL-2024-056003

PATIENT

DRUGS (4)
  1. MELPHALAN [Suspect]
     Active Substance: MELPHALAN
     Indication: Neuroblastoma
     Dosage: 70 MILLIGRAM/SQ. METER, ON DAY 6
     Route: 065
  2. MELPHALAN [Suspect]
     Active Substance: MELPHALAN
     Dosage: 140 MILLIGRAM/SQ. METER,ON DAY 7
     Route: 065
  3. CARBOPLATIN [Suspect]
     Active Substance: CARBOPLATIN
     Indication: Neuroblastoma
     Dosage: 350 MILLIGRAM/SQ. METER,DAY DAY 5 TO 8
     Route: 065
  4. ETOPOSIDE [Suspect]
     Active Substance: ETOPOSIDE
     Indication: Neuroblastoma
     Dosage: 200 MILLIGRAM/SQ. METER,FROM DAY 5 TO 8
     Route: 065

REACTIONS (1)
  - Rhabdomyosarcoma [Unknown]
